FAERS Safety Report 18649260 (Version 1)
Quarter: 2020Q4

REPORT INFORMATION
  Report Type: Spontaneous
  Country: IT (occurrence: IT)
  Receive Date: 20201222
  Receipt Date: 20201222
  Transmission Date: 20210114
  Serious: Yes (Hospitalization)
  Sender: FDA-Public Use
  Company Number: IT-MYLANLABS-2020M1103483

PATIENT
  Age: 82 Year
  Sex: Female

DRUGS (2)
  1. ELIQUIS [Interacting]
     Active Substance: APIXABAN
     Indication: ATRIAL FIBRILLATION
     Dosage: 5 MILLIGRAM, QD
     Dates: start: 20191001, end: 20200730
  2. SOTALOL. [Suspect]
     Active Substance: SOTALOL
     Indication: PRODUCT USED FOR UNKNOWN INDICATION
     Dosage: 160 MILLIGRAM, QD
     Dates: start: 20130101, end: 20200805

REACTIONS (4)
  - Loss of consciousness [Recovering/Resolving]
  - Drug interaction [Unknown]
  - Subdural haematoma [Recovering/Resolving]
  - Haemorrhage [Recovering/Resolving]

NARRATIVE: CASE EVENT DATE: 20200731
